FAERS Safety Report 15000300 (Version 2)
Quarter: 2019Q1

REPORT INFORMATION
  Report Type: Report from Study
  Country: IT (occurrence: IT)
  Receive Date: 20180612
  Receipt Date: 20190114
  Transmission Date: 20190417
  Serious: Yes (Hospitalization)
  Sender: FDA-Public Use
  Company Number: IT-TEVA-2018-IT-904210

PATIENT
  Age: 85 Year
  Sex: Male

DRUGS (6)
  1. PERINDOPRIL [Interacting]
     Active Substance: PERINDOPRIL
     Route: 065
  2. SIMVASTATIN. [Suspect]
     Active Substance: SIMVASTATIN
     Route: 065
  3. INFLUENZA VIRUS VACCINE [Interacting]
     Active Substance: INFLUENZA VIRUS VACCINE
     Indication: IMMUNISATION
     Route: 065
  4. GLUCOSAMINE [Concomitant]
     Active Substance: GLUCOSAMINE
     Route: 065
  5. METFORMIN [Interacting]
     Active Substance: METFORMIN HYDROCHLORIDE
     Route: 065
  6. CALCIUM CARBONATE. [Interacting]
     Active Substance: CALCIUM CARBONATE
     Route: 065

REACTIONS (5)
  - Gait inability [Unknown]
  - Dysstasia [Unknown]
  - Haematuria [Unknown]
  - Drug interaction [Unknown]
  - Rhabdomyolysis [Unknown]
